FAERS Safety Report 6667085-3 (Version None)
Quarter: 2010Q2

REPORT INFORMATION
  Report Type: 
  Country: None (occurrence: None)
  Receive Date: 20100402
  Receipt Date: 20100402
  Transmission Date: 20101027
  Serious: Yes (Hospitalization)
  Sender: FDA-Public Use
  Company Number: None

PATIENT
  Age: 80 Year
  Sex: Female
  Weight: 93 kg

DRUGS (1)
  1. VANCOMYCIN [Suspect]
     Dosage: 1500MG Q 24 HRS IV
     Route: 042

REACTIONS (2)
  - RENAL FAILURE [None]
  - STEVENS-JOHNSON SYNDROME [None]
